FAERS Safety Report 23379362 (Version 3)
Quarter: 2024Q1

REPORT INFORMATION
  Report Type: Report from Study
  Country: US (occurrence: US)
  Receive Date: 20240108
  Receipt Date: 20240205
  Transmission Date: 20240409
  Serious: Yes (Hospitalization)
  Sender: FDA-Public Use
  Company Number: US-PFIZER INC-PV202400000695

PATIENT
  Age: 59 Year
  Sex: Female
  Weight: 109.3 kg

DRUGS (3)
  1. HYDROMORPHONE HYDROCHLORIDE [Suspect]
     Active Substance: HYDROMORPHONE HYDROCHLORIDE
     Dosage: 2 MG ORAL TABLET PRN UP TO 4 TIMES DAILY
     Route: 048
     Dates: start: 20230602
  2. TUCATINIB [Suspect]
     Active Substance: TUCATINIB
     Indication: Invasive breast carcinoma
     Dosage: 300 MG, 2X/DAY
     Route: 048
     Dates: start: 20231121, end: 20231216
  3. ADO-TRASTUZUMAB EMTANSINE [Suspect]
     Active Substance: ADO-TRASTUZUMAB EMTANSINE
     Indication: Invasive breast carcinoma
     Dosage: 3.0 MG/KG, EVERY 21 DAYS
     Route: 042
     Dates: start: 20231121, end: 20231121

REACTIONS (2)
  - Constipation [Recovering/Resolving]
  - Colitis [Recovering/Resolving]

NARRATIVE: CASE EVENT DATE: 20231220
